FAERS Safety Report 10267305 (Version 1)
Quarter: 2014Q2

REPORT INFORMATION
  Report Type: Spontaneous
  Country: CZ (occurrence: CZ)
  Receive Date: 20140630
  Receipt Date: 20140630
  Transmission Date: 20141212
  Serious: Yes (Other)
  Sender: FDA-Public Use
  Company Number: CZ-JNJFOC-20140614683

PATIENT
  Age: 3 Year
  Sex: Female

DRUGS (4)
  1. REMICADE [Suspect]
     Indication: COLITIS ULCERATIVE
     Route: 042
  2. PENTASA S.R. [Concomitant]
     Indication: COLITIS ULCERATIVE
     Route: 048
  3. PREDNISON 5 [Concomitant]
     Indication: COLITIS ULCERATIVE
     Route: 048
  4. HELICID [Concomitant]
     Indication: COLITIS ULCERATIVE
     Route: 048

REACTIONS (1)
  - Hypersensitivity [Recovered/Resolved]
